FAERS Safety Report 6067849-3 (Version None)
Quarter: 2009Q1

REPORT INFORMATION
  Report Type: 
  Country: None (occurrence: None)
  Receive Date: 20090202
  Receipt Date: 20090122
  Transmission Date: 20090719
  Serious: Yes (Hospitalization)
  Sender: FDA-Public Use
  Company Number: 113481

PATIENT
  Age: 17 Year
  Sex: Female

DRUGS (4)
  1. IBUPROFEN [Suspect]
     Indication: DYSMENORRHOEA
     Dosage: 3-4 DAYS PER MONTH/ORAL
     Route: 048
  2. ESCITALOPRAM [Suspect]
     Indication: MAJOR DEPRESSION
     Dosage: 10-20 MG / QD / ORAL
     Route: 048
  3. ALPRAZOLAM [Concomitant]
  4. METOCLOPRAMIDE [Concomitant]

REACTIONS (10)
  - ABDOMINAL PAIN [None]
  - ANAEMIA [None]
  - ANXIETY [None]
  - DIARRHOEA [None]
  - FAECES DISCOLOURED [None]
  - NAUSEA [None]
  - NEPHRITIS ALLERGIC [None]
  - RENAL FAILURE ACUTE [None]
  - TUBULOINTERSTITIAL NEPHRITIS [None]
  - VOMITING [None]
